FAERS Safety Report 22174260 (Version 3)
Quarter: 2024Q2

REPORT INFORMATION
  Report Type: Report from Study
  Country: US (occurrence: US)
  Receive Date: 20230405
  Receipt Date: 20240401
  Transmission Date: 20240716
  Serious: No
  Sender: FDA-Public Use
  Company Number: US-ABBVIE-4714843

PATIENT
  Sex: Male
  Weight: 95 kg

DRUGS (1)
  1. RINVOQ [Suspect]
     Active Substance: UPADACITINIB
     Indication: Rheumatoid arthritis
     Dosage: MARCH OR APRIL
     Route: 048
     Dates: start: 2022

REACTIONS (1)
  - Arthralgia [Recovering/Resolving]
